FAERS Safety Report 8068827-5 (Version None)
Quarter: 2012Q1

REPORT INFORMATION
  Report Type: 
  Country: None (occurrence: None)
  Receive Date: 20120125
  Receipt Date: 20120117
  Transmission Date: 20120608
  Serious: Yes (Hospitalization)
  Sender: FDA-Public Use
  Company Number: US-BRISTOL-MYERS SQUIBB COMPANY-16329740

PATIENT
  Age: 30 Year
  Sex: Male
  Weight: 91 kg

DRUGS (1)
  1. ABILIFY [Suspect]
     Indication: BIPOLAR I DISORDER
     Dosage: ABILIFY 5MG ONCE DAILY BY MOUTH,DOSE INCREASED:30 MG ONCE DAILY BY MOUTH
     Route: 048

REACTIONS (5)
  - WEIGHT INCREASED [None]
  - DRUG INEFFECTIVE [None]
  - MANIA [None]
  - ACNE [None]
  - FOOD CRAVING [None]
